FAERS Safety Report 8472853-1 (Version None)
Quarter: 2012Q2

REPORT INFORMATION
  Report Type: 
  Country: None (occurrence: None)
  Receive Date: 20120627
  Receipt Date: 20120619
  Transmission Date: 20120825
  Serious: Yes (Hospitalization)
  Sender: FDA-Public Use
  Company Number: FR-SP-2012-01808

PATIENT
  Sex: Male

DRUGS (4)
  1. TAMSULOSIN HYDROCHLORIDE [Concomitant]
  2. LEVOTHYROXINE SODIUM [Concomitant]
  3. AVODART [Concomitant]
  4. IMMUCYST [Suspect]
     Indication: BLADDER CANCER
     Dosage: 1 TO 3 INSTILLATIONS/6 MONTHS
     Route: 043
     Dates: start: 20100201, end: 20120124

REACTIONS (9)
  - PYREXIA [None]
  - DISSEMINATED TUBERCULOSIS [None]
  - DECREASED APPETITE [None]
  - BOVINE TUBERCULOSIS [None]
  - LIVER DISORDER [None]
  - CHOLESTASIS [None]
  - ASTHENIA [None]
  - NIGHT SWEATS [None]
  - WEIGHT DECREASED [None]
